FAERS Safety Report 15532284 (Version 2)
Quarter: 2018Q4

REPORT INFORMATION
  Report Type: Spontaneous
  Country: US (occurrence: US)
  Receive Date: 20181019
  Receipt Date: 20181102
  Transmission Date: 20190205
  Serious: Yes (Other)
  Sender: FDA-Public Use
  Company Number: US-AUROBINDO-AUR-APL-2018-051049

PATIENT
  Age: 90 Year
  Sex: Male
  Weight: 77.5 kg

DRUGS (3)
  1. LOSARTAN POTASSIUM TABLETS USP 25MG [Suspect]
     Active Substance: LOSARTAN POTASSIUM
     Indication: HYPERTENSION
     Dosage: 02 TABLETS A DAY
     Route: 065
     Dates: start: 20181002
  2. PRAVASTATIN. [Concomitant]
     Active Substance: PRAVASTATIN
     Indication: PRODUCT USED FOR UNKNOWN INDICATION
  3. VITAMIN D3 [Concomitant]
     Active Substance: CHOLECALCIFEROL
     Indication: PRODUCT USED FOR UNKNOWN INDICATION

REACTIONS (4)
  - Blood pressure increased [Unknown]
  - Product substitution issue [Unknown]
  - Drug ineffective [Unknown]
  - Weight decreased [Unknown]

NARRATIVE: CASE EVENT DATE: 20181002
